FAERS Safety Report 8940502 (Version 1)
Quarter: 2012Q4

REPORT INFORMATION
  Report Type: 
  Country: AU (occurrence: AU)
  Receive Date: 20121203
  Receipt Date: 20121203
  Transmission Date: 20130627
  Serious: Yes (Death)
  Sender: FDA-Public Use
  Company Number: AU-JNJFOC-20121114891

PATIENT
  Age: 69 Year
  Sex: Female

DRUGS (1)
  1. REOPRO [Suspect]
     Indication: PRODUCT USED FOR UNKNOWN INDICATION
     Route: 042
     Dates: start: 20120705, end: 20120706

REACTIONS (2)
  - Cerebral haemorrhage [Fatal]
  - Brain oedema [Fatal]
